FAERS Safety Report 15372721 (Version 2)
Quarter: 2018Q3

REPORT INFORMATION
  Report Type: Spontaneous
  Country: US (occurrence: US)
  Receive Date: 20180912
  Receipt Date: 20180918
  Transmission Date: 20181010
  Serious: No
  Sender: FDA-Public Use
  Company Number: US-TEVA-2018-US-952909

PATIENT
  Sex: Female

DRUGS (2)
  1. MICONAZOLE. [Suspect]
     Active Substance: MICONAZOLE
     Indication: PRURITUS
     Dosage: 3 COMBO,200 MG / 2 %
     Route: 065
  2. MICONAZOLE. [Suspect]
     Active Substance: MICONAZOLE
     Indication: SKIN BURNING SENSATION

REACTIONS (1)
  - Drug ineffective [Unknown]
